FAERS Safety Report 25091371 (Version 2)
Quarter: 2025Q3

REPORT INFORMATION
  Report Type: Spontaneous
  Country: US (occurrence: US)
  Receive Date: 20250318
  Receipt Date: 20250929
  Transmission Date: 20251021
  Serious: No
  Sender: SANOFI AVENTIS
  Company Number: US-SA-2025SA077746

PATIENT
  Age: 52 Year
  Sex: Female

DRUGS (4)
  1. KEVZARA [Suspect]
     Active Substance: SARILUMAB
     Indication: Arthropathy
     Dosage: 200 MG, QOW
     Route: 058
     Dates: start: 202502
  2. KEVZARA [Suspect]
     Active Substance: SARILUMAB
     Indication: Rheumatoid arthritis
  3. IBUPROFEN [Concomitant]
     Active Substance: IBUPROFEN
     Indication: Breakthrough pain
  4. OXYCODONE [Concomitant]
     Active Substance: OXYCODONE
     Indication: Breakthrough pain

REACTIONS (4)
  - Arthralgia [Recovering/Resolving]
  - Joint swelling [Unknown]
  - Condition aggravated [Unknown]
  - Product use in unapproved indication [Unknown]

NARRATIVE: CASE EVENT DATE: 20250201
